FAERS Safety Report 6479936-6 (Version None)
Quarter: 2009Q4

REPORT INFORMATION
  Report Type: 
  Country: None (occurrence: None)
  Receive Date: 20091208
  Receipt Date: 20091116
  Transmission Date: 20100525
  Serious: Yes (Hospitalization, Other)
  Sender: FDA-Public Use
  Company Number: GB-SANOFI-AVENTIS-2009SA002558

PATIENT
  Age: 70 Year
  Sex: Male

DRUGS (7)
  1. LEFLUNOMIDE [Suspect]
     Indication: RHEUMATOID ARTHRITIS
     Route: 048
     Dates: start: 20080101
  2. ETANERCEPT [Suspect]
     Indication: RHEUMATOID ARTHRITIS
     Route: 058
     Dates: start: 20070101, end: 20081001
  3. ALENDRONATE SODIUM [Concomitant]
     Indication: DRUG USE FOR UNKNOWN INDICATION
     Route: 048
  4. HYPURIN ISOPHANE [Concomitant]
     Indication: DRUG USE FOR UNKNOWN INDICATION
  5. INSULIN ISOPHANE BOVINE/INSULIN ISOPHANE PORCINE [Concomitant]
     Indication: DRUG USE FOR UNKNOWN INDICATION
  6. IRBESARTAN [Concomitant]
     Indication: DRUG USE FOR UNKNOWN INDICATION
  7. METFORMIN HCL [Concomitant]
     Indication: DRUG USE FOR UNKNOWN INDICATION

REACTIONS (3)
  - CONDITION AGGRAVATED [None]
  - MALAISE [None]
  - TYPE 1 DIABETES MELLITUS [None]
